FAERS Safety Report 20315530 (Version 2)
Quarter: 2022Q1

REPORT INFORMATION
  Report Type: Spontaneous
  Country: US (occurrence: US)
  Receive Date: 20220110
  Receipt Date: 20220202
  Transmission Date: 20220423
  Serious: No
  Sender: FDA-Public Use
  Company Number: US-CELGENE-USA-20220100636

PATIENT
  Age: 74 Year
  Sex: Female

DRUGS (7)
  1. REVLIMID [Suspect]
     Active Substance: LENALIDOMIDE
     Indication: Follicular lymphoma
     Dosage: 10 MILLIGRAM
     Route: 048
     Dates: start: 20210415
  2. REVLIMID [Suspect]
     Active Substance: LENALIDOMIDE
     Indication: Off label use
     Dosage: 15 MILLIGRAM
     Route: 048
     Dates: start: 202106
  3. REVLIMID [Suspect]
     Active Substance: LENALIDOMIDE
     Dosage: 10 MILLIGRAM
     Route: 048
     Dates: start: 202110
  4. TAZEMETOSTAT [Suspect]
     Active Substance: TAZEMETOSTAT
     Indication: Neoplasm malignant
     Route: 065
  5. ASPIRIN [Concomitant]
     Active Substance: ASPIRIN
     Indication: Thrombosis prophylaxis
     Dosage: 81 MILLIGRAM
     Route: 048
     Dates: start: 20210415
  6. ENTECAVIR [Concomitant]
     Active Substance: ENTECAVIR
     Indication: Antiviral prophylaxis
     Dosage: .5 MILLIGRAM
     Route: 048
     Dates: start: 20210415
  7. ETANERCEPT [Concomitant]
     Active Substance: ETANERCEPT
     Indication: Hypertension
     Dosage: 5 MILLIGRAM
     Route: 048
     Dates: start: 2019

REACTIONS (1)
  - Neutropenia [Recovered/Resolved]

NARRATIVE: CASE EVENT DATE: 20211229
